FAERS Safety Report 7232449-6 (Version None)
Quarter: 2011Q1

REPORT INFORMATION
  Report Type: 
  Country: None (occurrence: None)
  Receive Date: 20110119
  Receipt Date: 20110110
  Transmission Date: 20110831
  Serious: Yes (Disabling)
  Sender: FDA-Public Use
  Company Number: US-PFIZER INC-2010141239

PATIENT
  Sex: Female

DRUGS (1)
  1. CHANTIX [Suspect]
     Indication: SMOKING CESSATION THERAPY
     Dosage: 0.5MG + 1MG
     Dates: start: 20080510, end: 20080601

REACTIONS (5)
  - DEPRESSION [None]
  - ANXIETY [None]
  - PANIC ATTACK [None]
  - IRRITABILITY [None]
  - MENTAL DISORDER [None]
